FAERS Safety Report 9913474 (Version 1)
Quarter: 2014Q1

REPORT INFORMATION
  Report Type: Spontaneous
  Country: US (occurrence: None)
  Receive Date: 20140219
  Receipt Date: 20140219
  Transmission Date: 20141002
  Serious: Yes (Hospitalization)
  Sender: FDA-Public Use
  Company Number: None

PATIENT
  Age: 68 Year
  Sex: Male
  Weight: 94.5 kg

DRUGS (3)
  1. CYTARABINE [Suspect]
  2. IDARUBICIN [Suspect]
  3. PRAVASTATIN SODIUM [Suspect]

REACTIONS (7)
  - Diarrhoea [None]
  - Vomiting [None]
  - Dyspnoea [None]
  - Disorientation [None]
  - Confusional state [None]
  - Asthenia [None]
  - Atrial fibrillation [None]
